FAERS Safety Report 11942113 (Version 5)
Quarter: 2016Q2

REPORT INFORMATION
  Report Type: Spontaneous
  Country: KR (occurrence: KR)
  Receive Date: 20160124
  Receipt Date: 20160410
  Transmission Date: 20160815
  Serious: Yes (Death)
  Sender: FDA-Public Use
  Company Number: KR-AMGEN-KORCT2016007538

PATIENT
  Age: 57 Year
  Sex: Male
  Weight: 53 kg

DRUGS (36)
  1. PREDNISOLONE. [Concomitant]
     Active Substance: PREDNISOLONE
     Dosage: 100 MG, UNK
     Route: 048
     Dates: start: 20150726, end: 20150924
  2. CEFTRIAXONE. [Concomitant]
     Active Substance: CEFTRIAXONE
     Dosage: 2 G, UNK
     Route: 042
     Dates: start: 20150726, end: 20150726
  3. EMEND [Concomitant]
     Active Substance: APREPITANT
     Dosage: 80 MG, UNK
     Route: 048
     Dates: start: 20150726, end: 20150924
  4. PENNEL                             /01570505/ [Concomitant]
     Dosage: 225 MG, UNK
     Route: 048
     Dates: start: 20150821, end: 20150821
  5. CYCLOPHOSPHAMIDE. [Concomitant]
     Active Substance: CYCLOPHOSPHAMIDE
     Dosage: 12750 MG, UNK
     Route: 042
     Dates: start: 20151028, end: 20151028
  6. DOXORUBICIN [Concomitant]
     Active Substance: DOXORUBICIN
     Indication: NON-HODGKIN^S LYMPHOMA
     Dosage: 85 MG, UNK
     Route: 042
     Dates: start: 20150724, end: 20150724
  7. DOXORUBICIN [Concomitant]
     Active Substance: DOXORUBICIN
     Dosage: 85 MG, UNK
     Route: 042
     Dates: start: 20151028, end: 20151028
  8. VINCRISTINE [Concomitant]
     Active Substance: VINCRISTINE
     Indication: NON-HODGKIN^S LYMPHOMA
     Dosage: 2.4 MG, UNK
     Route: 042
     Dates: start: 20150724, end: 20150724
  9. HEPARIN [Concomitant]
     Active Substance: HEPARIN SODIUM
     Dosage: 500 UNIT/ML
     Route: 042
     Dates: start: 20150821, end: 20151030
  10. G-LASTA [Suspect]
     Active Substance: PEGFILGRASTIM
     Indication: FEBRILE NEUTROPENIA
     Dosage: 6 MG, 1X/3WEEKS
     Route: 058
     Dates: start: 20150726, end: 20150726
  11. G-LASTA [Suspect]
     Active Substance: PEGFILGRASTIM
     Dosage: 6 MG, 1X/3WEEKS
     Route: 058
     Dates: start: 20150821, end: 20150821
  12. RITUXIMAB [Concomitant]
     Active Substance: RITUXIMAB
     Dosage: 638 MG, UNK
     Route: 042
     Dates: start: 20151028, end: 20151028
  13. DOXORUBICIN [Concomitant]
     Active Substance: DOXORUBICIN
     Dosage: 85 MG, UNK
     Route: 042
     Dates: start: 20150922, end: 20150922
  14. PREDNISOLONE. [Concomitant]
     Active Substance: PREDNISOLONE
     Dosage: 170 MG, UNK
     Route: 048
     Dates: start: 20151028, end: 20151028
  15. EMEND [Concomitant]
     Active Substance: APREPITANT
     Dosage: 80 MG, UNK
     Route: 048
     Dates: start: 20150924, end: 20150924
  16. RITUXIMAB [Concomitant]
     Active Substance: RITUXIMAB
     Dosage: 638 MG, UNK
     Route: 042
     Dates: start: 20150819, end: 20150819
  17. RITUXIMAB [Concomitant]
     Active Substance: RITUXIMAB
     Dosage: 638 MG, UNK
     Route: 042
     Dates: start: 20150922, end: 20150922
  18. CYCLOPHOSPHAMIDE. [Concomitant]
     Active Substance: CYCLOPHOSPHAMIDE
     Indication: NON-HODGKIN^S LYMPHOMA
     Dosage: 1275 MG, UNK
     Route: 042
     Dates: start: 20150724, end: 20150724
  19. VINCRISTINE [Concomitant]
     Active Substance: VINCRISTINE
     Dosage: 2.4 MG, UNK
     Route: 042
     Dates: start: 20150819, end: 20150819
  20. VINCRISTINE [Concomitant]
     Active Substance: VINCRISTINE
     Dosage: 2.4 MG, UNK
     Route: 042
     Dates: start: 20151028, end: 20151028
  21. FEROBA U [Concomitant]
     Dosage: 512 MG, UNK
     Route: 048
     Dates: start: 20150726, end: 20151030
  22. URSA [Concomitant]
     Dosage: 300 MG, UNK
     Route: 048
     Dates: start: 20150821, end: 20150821
  23. G-LASTA [Suspect]
     Active Substance: PEGFILGRASTIM
     Dosage: 6 MG, 1X/3WEEKS
     Route: 058
     Dates: start: 20151030, end: 20151030
  24. DOXORUBICIN [Concomitant]
     Active Substance: DOXORUBICIN
     Dosage: 85 MG, UNK
     Route: 042
     Dates: start: 20150819, end: 20150819
  25. VINCRISTINE [Concomitant]
     Active Substance: VINCRISTINE
     Dosage: 2.4 MG, UNK
     Route: 042
     Dates: start: 20150922, end: 20150922
  26. FEROBA [Concomitant]
     Active Substance: FERROUS SULFATE\PROTEASE
     Dosage: 160 MG, UNK
     Route: 048
     Dates: start: 20150924, end: 20150924
  27. MAGNESIUM OXIDE. [Concomitant]
     Active Substance: MAGNESIUM OXIDE
     Dosage: 1500 MG, UNK
     Route: 048
     Dates: start: 20150924, end: 20150930
  28. CYCLOPHOSPHAMIDE. [Concomitant]
     Active Substance: CYCLOPHOSPHAMIDE
     Dosage: 1275 MG, UNK
     Route: 042
     Dates: start: 20150922, end: 20150922
  29. PREDNISOLONE. [Concomitant]
     Active Substance: PREDNISOLONE
     Dosage: 170 MG, UNK
     Route: 048
     Dates: start: 20150819, end: 20150819
  30. EMEND [Concomitant]
     Active Substance: APREPITANT
     Dosage: 80 MG, UNK
     Route: 048
     Dates: start: 20150821, end: 20150821
  31. LANSTON [Concomitant]
     Active Substance: LANSOPRAZOLE
     Dosage: 30 MG, UNK
     Route: 048
     Dates: start: 20150726, end: 20151030
  32. G-LASTA [Suspect]
     Active Substance: PEGFILGRASTIM
     Dosage: 6 MG, 1X/3WEEKS
     Route: 058
     Dates: start: 20150924, end: 20150924
  33. CYCLOPHOSPHAMIDE. [Concomitant]
     Active Substance: CYCLOPHOSPHAMIDE
     Dosage: 1275 MG, UNK
     Route: 042
     Dates: start: 20150819, end: 20150819
  34. PREDNISOLONE. [Concomitant]
     Active Substance: PREDNISOLONE
     Dosage: 170 MG, UNK
     Route: 048
     Dates: start: 20150922, end: 20150922
  35. RITUXIMAB [Concomitant]
     Active Substance: RITUXIMAB
     Indication: NON-HODGKIN^S LYMPHOMA
     Dosage: 638 MG, UNK
     Route: 042
     Dates: start: 20150724, end: 20150724
  36. PREDNISOLONE. [Concomitant]
     Active Substance: PREDNISOLONE
     Indication: NON-HODGKIN^S LYMPHOMA
     Dosage: 170 MG, UNK
     Route: 048
     Dates: start: 20150724, end: 20150724

REACTIONS (1)
  - Febrile neutropenia [Fatal]

NARRATIVE: CASE EVENT DATE: 20151104
